FAERS Safety Report 5063232-8 (Version None)
Quarter: 2006Q3

REPORT INFORMATION
  Report Type: 
  Country: None (occurrence: None)
  Receive Date: 20060724
  Receipt Date: 20060712
  Transmission Date: 20061208
  Serious: Yes (Other)
  Sender: FDA-Public Use
  Company Number: 2006067144

PATIENT
  Age: 16 Year
  Sex: Female

DRUGS (4)
  1. GEODON [Suspect]
     Indication: MAJOR DEPRESSION
     Dosage: 160 MG (80 MG, 2 IN 1 D)
  2. GEODON [Suspect]
     Indication: PSYCHOTIC DISORDER
     Dosage: 160 MG (80 MG, 2 IN 1 D)
  3. RISPERDAL [Suspect]
     Indication: MAJOR DEPRESSION
     Dosage: 2 MG (2 MG, 1 IN 1 D)
  4. RISPERDAL [Suspect]
     Indication: PSYCHOTIC DISORDER
     Dosage: 2 MG (2 MG, 1 IN 1 D)

REACTIONS (1)
  - PITUITARY TUMOUR BENIGN [None]
